FAERS Safety Report 6388947-0 (Version None)
Quarter: 2009Q4

REPORT INFORMATION
  Report Type: 
  Country: None (occurrence: None)
  Receive Date: 20091001
  Receipt Date: 20090922
  Transmission Date: 20100525
  Serious: Yes (Hospitalization, Other)
  Sender: FDA-Public Use
  Company Number: ADR29222009

PATIENT
  Age: 48 Year

DRUGS (13)
  1. RAMIPRIL [Suspect]
  2. ACETYLSALICYLIC ACID [Concomitant]
  3. DIDANOSINE [Concomitant]
  4. EFAVIRENZ [Concomitant]
  5. KALETRA [Concomitant]
  6. LAMIVUDINE [Concomitant]
  7. NELFINAVIR MESYLATE [Concomitant]
  8. STAVUDINE [Concomitant]
  9. TENOFOVIR [Concomitant]
  10. ZIDOVUDINE [Concomitant]
  11. ATORVASTATIN [Concomitant]
  12. OMEGA-3-ACID ETHYL ESTERS [Concomitant]
  13. PRAVASTAIN [Concomitant]

REACTIONS (7)
  - BLOOD CHOLESTEROL INCREASED [None]
  - BLOOD TRIGLYCERIDES INCREASED [None]
  - CENTRAL OBESITY [None]
  - DRUG RESISTANCE [None]
  - MYOCARDIAL INFARCTION [None]
  - TOBACCO USER [None]
  - VIROLOGIC FAILURE [None]
